FAERS Safety Report 23022035 (Version 5)
Quarter: 2023Q4

REPORT INFORMATION
  Report Type: Spontaneous
  Country: US (occurrence: US)
  Receive Date: 20231003
  Receipt Date: 20231214
  Transmission Date: 20240110
  Serious: No
  Sender: FDA-Public Use
  Company Number: US-DAIICHI SANKYO, INC.-DSU-2023-140555AA

PATIENT
  Sex: Female

DRUGS (3)
  1. TURALIO [Suspect]
     Active Substance: PEXIDARTINIB HYDROCHLORIDE
     Indication: Connective tissue neoplasm
     Dosage: 250 MG, BID
     Route: 048
     Dates: start: 20230913
  2. TURALIO [Suspect]
     Active Substance: PEXIDARTINIB HYDROCHLORIDE
     Indication: Soft tissue neoplasm
  3. MULTIVITAMINES WITH IRON [ASCORBIC ACID;CYANOCOBALAMIN;ERGOCALCIFEROL; [Concomitant]
     Indication: Product used for unknown indication
     Dosage: UNK
     Route: 065

REACTIONS (9)
  - Mood swings [Recovered/Resolved]
  - Blood iron abnormal [Unknown]
  - Rash [Recovered/Resolved]
  - Rash [Recovered/Resolved]
  - Hair colour changes [Recovered/Resolved]
  - Hair colour changes [Recovered/Resolved]
  - Hair colour changes [Recovered/Resolved]
  - Off label use [Not Recovered/Not Resolved]
  - Product dose omission issue [Recovered/Resolved]

NARRATIVE: CASE EVENT DATE: 20230101
